FAERS Safety Report 19650082 (Version 1)
Quarter: 2021Q3

REPORT INFORMATION
  Report Type: Spontaneous
  Country: US (occurrence: US)
  Receive Date: 20210802
  Receipt Date: 20210802
  Transmission Date: 20211014
  Serious: Yes (Hospitalization, Other)
  Sender: FDA-Public Use
  Company Number: US-ANIPHARMA-2021-US-015851

PATIENT
  Age: 67 Year
  Sex: Male

DRUGS (1)
  1. IBUPROFEN (NON?SPECIFIC) [Suspect]
     Active Substance: IBUPROFEN
     Indication: ARTHRALGIA
     Dosage: 400 MG 3 TO 4 TIMES DAILY

REACTIONS (3)
  - Glomerulonephritis minimal lesion [Recovered/Resolved]
  - Glomerulonephritis membranous [Recovered/Resolved]
  - Tubulointerstitial nephritis [Recovered/Resolved]
